FAERS Safety Report 23967535 (Version 1)
Quarter: 2024Q2

REPORT INFORMATION
  Report Type: Spontaneous
  Country: US (occurrence: None)
  Receive Date: 20240611
  Receipt Date: 20240611
  Transmission Date: 20240715
  Serious: Yes (Hospitalization)
  Sender: FDA-Public Use
  Company Number: None

PATIENT
  Age: 84 Year
  Sex: Female

DRUGS (10)
  1. STELARA [Suspect]
     Active Substance: USTEKINUMAB
     Indication: Psoriasis
     Dosage: OTHER FREQUENCY : EVERY 12 WEEKS;?
     Route: 058
  2. CLONIDINE [Concomitant]
     Active Substance: CLONIDINE
  3. HYDROCHLOROTHIAZIDE [Concomitant]
     Active Substance: HYDROCHLOROTHIAZIDE
  4. NIFEDIPINE [Concomitant]
     Active Substance: NIFEDIPINE
  5. ELIQUIS [Concomitant]
     Active Substance: APIXABAN
  6. NITROGLYCERIN [Concomitant]
     Active Substance: NITROGLYCERIN
  7. LOSARTAN [Concomitant]
     Active Substance: LOSARTAN
  8. GLYBURIDE [Concomitant]
     Active Substance: GLYBURIDE
  9. ASPIRIN [Concomitant]
     Active Substance: ASPIRIN
  10. SPIRONOLACTONE [Concomitant]
     Active Substance: SPIRONOLACTONE

REACTIONS (1)
  - Muscle spasms [None]

NARRATIVE: CASE EVENT DATE: 20240606
